FAERS Safety Report 7987479-3 (Version None)
Quarter: 2011Q4

REPORT INFORMATION
  Report Type: 
  Country: None (occurrence: None)
  Receive Date: 20111216
  Receipt Date: 20111206
  Transmission Date: 20120403
  Serious: Yes (Hospitalization)
  Sender: FDA-Public Use
  Company Number: PHHY2011BR107832

PATIENT
  Sex: Male

DRUGS (5)
  1. GALVUS MET [Suspect]
     Indication: DIABETES MELLITUS
     Dosage: 1 DF (850/50 MG) DAILY
     Dates: start: 20101101, end: 20110201
  2. GALVUS MET [Suspect]
     Dosage: 1 DF (1000/50 MG) DAILY
     Dates: start: 20110201
  3. DIOVAN [Suspect]
     Dosage: 80 MG, UNK
  4. ATORVASTATIN [Concomitant]
     Dosage: UNK
  5. DIOVAN [Suspect]
     Indication: HYPERTENSION
     Dosage: 80 MG DAILY

REACTIONS (2)
  - BLOOD GLUCOSE INCREASED [None]
  - MYOCARDIAL INFARCTION [None]
